FAERS Safety Report 6037744-4 (Version None)
Quarter: 2009Q1

REPORT INFORMATION
  Report Type: 
  Country: None (occurrence: None)
  Receive Date: 20090114
  Receipt Date: 20090106
  Transmission Date: 20090719
  Serious: Yes (Death, Hospitalization)
  Sender: FDA-Public Use
  Company Number: US-GENENTECH-274819

PATIENT
  Sex: Male
  Weight: 73.016 kg

DRUGS (11)
  1. AVASTIN [Suspect]
     Indication: COLORECTAL CANCER METASTATIC
     Dosage: 515 MG, Q2W
     Route: 042
     Dates: start: 20081230
  2. FOLINIC ACID [Concomitant]
     Indication: COLON CANCER METASTATIC
  3. FLUOROURACIL [Concomitant]
     Indication: COLON CANCER METASTATIC
  4. OXALIPLATIN [Concomitant]
     Indication: COLON CANCER METASTATIC
  5. BENADRYL [Concomitant]
     Indication: PREMEDICATION
     Dosage: 50 UNK, UNK
     Dates: start: 20081230
  6. TAGAMET [Concomitant]
     Indication: PREMEDICATION
     Dosage: 300 UNK, UNK
     Dates: start: 20081230
  7. STEROID (NAME UNKNOWN) [Concomitant]
     Indication: PREMEDICATION
  8. SOLU-MEDROL [Concomitant]
     Indication: DRUG USE FOR UNKNOWN INDICATION
     Dosage: 125 UNK, UNK
     Dates: start: 20081230
  9. COUMADIN [Concomitant]
     Indication: THROMBOSIS
  10. PREVACID [Concomitant]
     Indication: DRUG USE FOR UNKNOWN INDICATION
  11. VICODIN [Concomitant]
     Indication: DRUG USE FOR UNKNOWN INDICATION

REACTIONS (3)
  - BACK PAIN [None]
  - FLUSHING [None]
  - HAEMORRHAGE INTRACRANIAL [None]
